FAERS Safety Report 8685036 (Version 4)
Quarter: 2013Q1

REPORT INFORMATION
  Report Type: Spontaneous
  Country: JP (occurrence: None)
  Receive Date: 20120706
  Receipt Date: 20130208
  Transmission Date: 20140127
  Serious: Yes (Hospitalization, Other)
  Sender: FDA-Public Use
  Company Number: 2012-002344

PATIENT
  Age: 74 Year
  Sex: Female

DRUGS (9)
  1. RISEDRONATE SODIUM [Suspect]
     Indication: OSTEOPOROSIS
     Dosage: 17.5 MG WEEKLY, ORAL
     Route: 048
     Dates: start: 200906, end: 20110119
  2. LOXONIN (LOXOPROFEN SODIUM) [Concomitant]
  3. STOMATIDIN /00027901/ (HEXETIDINE) [Concomitant]
  4. LYRICA [Concomitant]
  5. ALL OTHER THERAPEUTIC PRODUCTS [Concomitant]
  6. OSPAIN (ETODOLAC) UNK [Concomitant]
  7. VOLTAREN /00372301/(DICLOFENAC) [Concomitant]
  8. MYSLEE (ZOLPIDEM TARTRATE) [Concomitant]
  9. METHYCOBAL (MECOBALAMIN) UNK [Concomitant]

REACTIONS (4)
  - Atypical femur fracture [None]
  - Fracture delayed union [None]
  - Fall [None]
  - Bone pain [None]
